FAERS Safety Report 9105818 (Version 2)
Quarter: 2013Q1

REPORT INFORMATION
  Report Type: Spontaneous
  Country: US (occurrence: US)
  Receive Date: 20130220
  Receipt Date: 20130322
  Transmission Date: 20140127
  Serious: Yes (Other)
  Sender: FDA-Public Use
  Company Number: PHEH2013US004097

PATIENT
  Sex: Female

DRUGS (14)
  1. GILENYA [Suspect]
     Dosage: 0.5 MG, QD
     Route: 048
  2. VITAMIN B12 [Concomitant]
     Dosage: 1000 UG, UNK
  3. AVAPRO [Concomitant]
     Dosage: 75 MG, UNK
  4. LANTUS [Concomitant]
  5. JANUMET [Concomitant]
  6. EFFEXOR [Concomitant]
     Dosage: 25 MG, UNK
  7. TEGRETOL [Concomitant]
     Dosage: 200 MG, UNK
  8. VITAMIN D [Concomitant]
     Dosage: 400 U, UNK
  9. CLONAZEPAM [Concomitant]
     Indication: AUTONOMIC SEIZURE
     Dosage: 0.5 MG, UNK
  10. LIPITOR [Concomitant]
     Dosage: 10 MG, UNK
  11. PRADAXA [Concomitant]
     Dosage: 75 MG, UNK
  12. ARICEPT [Concomitant]
     Dosage: 10 MG, UNK
  13. NOVOLOG [Concomitant]
  14. ROBAXIN [Concomitant]
     Dosage: 500 MG, UNK

REACTIONS (4)
  - Multiple sclerosis relapse [Unknown]
  - Hypoaesthesia [Unknown]
  - Muscular weakness [Unknown]
  - Stress [Unknown]
